FAERS Safety Report 20530341 (Version 1)
Quarter: 2022Q1

REPORT INFORMATION
  Report Type: Report from Study
  Country: US (occurrence: US)
  Receive Date: 20220301
  Receipt Date: 20220301
  Transmission Date: 20220423
  Serious: No
  Sender: FDA-Public Use
  Company Number: US-ACADIA PHARMACEUTICALS INC.-ACA-2022-PIM-000401

PATIENT
  Sex: Female

DRUGS (17)
  1. NUPLAZID [Suspect]
     Active Substance: PIMAVANSERIN TARTRATE
     Indication: Parkinson^s disease psychosis
     Dosage: 34 MILLIGRAM, QD
     Route: 048
     Dates: start: 20220118, end: 20220203
  2. NUPLAZID [Suspect]
     Active Substance: PIMAVANSERIN TARTRATE
     Indication: Hallucination
  3. NUPLAZID [Suspect]
     Active Substance: PIMAVANSERIN TARTRATE
     Indication: Delusion
  4. MAGNEBIND [Concomitant]
     Dosage: 400 PO TAKE BY MOUTH 1TIME EACH DAY
     Route: 048
  5. SINEMET [Concomitant]
     Active Substance: CARBIDOPA\LEVODOPA
     Dosage: 25-100 MG ER (1TAB BY MOUTH 3 TIMES A DAY)
     Route: 048
     Dates: start: 20211004
  6. SINEMET [Concomitant]
     Active Substance: CARBIDOPA\LEVODOPA
     Dosage: 50-200MG ER (1 TAB BY MOUTH 2 TIMES A DAY. TAKE 1 TAB AT 3 AM AND SECOND TAB BEFORE BED)
  7. SYNTHROID [Concomitant]
     Active Substance: LEVOTHYROXINE SODIUM
     Dosage: 75 MCG (75MCG BY MOUTH 1 TIME EACH DAY)
     Route: 048
     Dates: start: 20201005
  8. ATIVAN [Concomitant]
     Active Substance: LORAZEPAM
     Indication: Anxiety
     Dosage: 0.5 MG (1 TAB BY MOUTH EVERY 12 HRS)
     Route: 048
     Dates: start: 20220118
  9. ATIVAN [Concomitant]
     Active Substance: LORAZEPAM
     Dosage: 1 MILLIGRAM
     Dates: end: 20220218
  10. PRILOSEC [Concomitant]
     Active Substance: OMEPRAZOLE MAGNESIUM
     Dosage: 40 MILLIGRAM (40MG BY MOUTH 1 TIME EACH DAY)
     Route: 048
  11. LUMINAL [PHENOBARBITAL] [Concomitant]
     Dosage: 60 MILLIGRAM (1TAB BY MOUTH 1 TIME EACH DAY)
     Route: 048
     Dates: start: 20211020
  12. LUMINAL [PHENOBARBITAL] [Concomitant]
     Dosage: 30 MILLIGRAM (1TAB BY MOUTH 1 TIME EACH DAY)
     Route: 048
     Dates: start: 20211102
  13. COMPAZINE [Concomitant]
     Active Substance: PROCHLORPERAZINE MALEATE
     Dosage: 5 MILLIGRAM (5MG BY MOUTH 2 TIMES A DAY)
     Route: 048
  14. VITAMIN B2 [Concomitant]
     Active Substance: RIBOFLAVIN
     Dosage: 400 MILLIGRAM (400MG BY MOUTH 1 TIME EACH DAY)
     Route: 048
  15. EFFEXOR [Concomitant]
     Active Substance: VENLAFAXINE HYDROCHLORIDE
     Dosage: 75 MILLIGRAM (1CAP BY MOUTH 1 TIME EACH DAY) 24HR
     Route: 048
  16. EFFEXOR [Concomitant]
     Active Substance: VENLAFAXINE HYDROCHLORIDE
     Dosage: 150 MILLIGRAM (1CAP BY MOUTH 1 TIME EACH DAY) 24HR
     Dates: start: 20220118, end: 20220217
  17. ZOMIG [Concomitant]
     Active Substance: ZOLMITRIPTAN
     Dosage: 5 MILLIGRAM (5MG BY MOUTH IF NEEDED)
     Route: 048

REACTIONS (2)
  - Musculoskeletal stiffness [Unknown]
  - Bradykinesia [Not Recovered/Not Resolved]
